FAERS Safety Report 23202503 (Version 1)
Quarter: 2023Q4

REPORT INFORMATION
  Report Type: Spontaneous
  Country: DE (occurrence: DE)
  Receive Date: 20231120
  Receipt Date: 20231120
  Transmission Date: 20240110
  Serious: Yes (Hospitalization)
  Sender: FDA-Public Use
  Company Number: DE-STRIDES ARCOLAB LIMITED-2023SP017197

PATIENT
  Age: 65 Year
  Sex: Female

DRUGS (3)
  1. ACYCLOVIR [Suspect]
     Active Substance: ACYCLOVIR
     Indication: Oral herpes
     Dosage: UNK
     Route: 048
  2. HERBALS [Suspect]
     Active Substance: HERBALS
     Indication: Thinking abnormal
     Dosage: UNK
     Route: 065
  3. RAUWOLFIA SERPENTINA [Suspect]
     Active Substance: RAUWOLFIA SERPENTINA
     Indication: Hypertension
     Dosage: UNK
     Route: 065

REACTIONS (1)
  - Drug-induced liver injury [Recovered/Resolved]
